FAERS Safety Report 20840330 (Version 1)
Quarter: 2022Q2

REPORT INFORMATION
  Report Type: Spontaneous
  Country: US (occurrence: US)
  Receive Date: 20220517
  Receipt Date: 20220517
  Transmission Date: 20220720
  Serious: Yes (Other)
  Sender: FDA-Public Use
  Company Number: US-BAYER-2022A069154

PATIENT
  Age: 71 Year
  Sex: Male

DRUGS (3)
  1. BAYER LOW DOSE [Interacting]
     Active Substance: ASPIRIN
     Dosage: UNK
  2. CLOPIDOGREL [Interacting]
     Active Substance: CLOPIDOGREL BISULFATE
  3. HEPARIN [Interacting]
     Active Substance: HEPARIN SODIUM

REACTIONS (4)
  - Haemothorax [None]
  - Shock [Recovered/Resolved]
  - Metabolic acidosis [None]
  - Labelled drug-drug interaction medication error [None]
